FAERS Safety Report 21766148 (Version 1)
Quarter: 2022Q4

REPORT INFORMATION
  Report Type: Spontaneous
  Country: US (occurrence: None)
  Receive Date: 20221221
  Receipt Date: 20221221
  Transmission Date: 20230112
  Serious: Yes (Hospitalization, Other)
  Sender: FDA-Public Use
  Company Number: None

PATIENT
  Age: 69 Year
  Sex: Female
  Weight: 72 kg

DRUGS (8)
  1. TRELEGY ELLIPTA [Suspect]
     Active Substance: FLUTICASONE FUROATE\UMECLIDINIUM BROMIDE\VILANTEROL TRIFENATATE
     Indication: Chronic obstructive pulmonary disease
     Dosage: OTHER QUANTITY : 1 PUFF(S);?
     Route: 055
     Dates: start: 20180101, end: 20221221
  2. TRELEGY ELLIPTA [Suspect]
     Active Substance: FLUTICASONE FUROATE\UMECLIDINIUM BROMIDE\VILANTEROL TRIFENATATE
     Indication: Lung disorder
  3. COLESTIPOL [Concomitant]
     Active Substance: COLESTIPOL
  4. LEVOTHYROXINE [Concomitant]
     Active Substance: LEVOTHYROXINE
  5. TRAZODONE [Concomitant]
     Active Substance: TRAZODONE HYDROCHLORIDE
  6. VITAMINS B12 [Concomitant]
  7. ASCORBIC ACID [Concomitant]
     Active Substance: ASCORBIC ACID
  8. VITAMINS D [Concomitant]

REACTIONS (5)
  - Trismus [None]
  - Temporomandibular joint syndrome [None]
  - Bone loss [None]
  - Pain in jaw [None]
  - Mastication disorder [None]

NARRATIVE: CASE EVENT DATE: 20220121
